FAERS Safety Report 8838687 (Version 1)
Quarter: 2012Q4

REPORT INFORMATION
  Report Type: 
  Country: MX (occurrence: MX)
  Receive Date: 20121012
  Receipt Date: 20121012
  Transmission Date: 20130627
  Serious: Yes (Death)
  Sender: FDA-Public Use
  Company Number: MX-PFIZER INC-2012250621

PATIENT
  Age: 77 Year
  Sex: Male

DRUGS (2)
  1. CELEBREX [Suspect]
     Indication: ARTHRITIS
     Dosage: 200 mg, 2x/day
     Route: 048
     Dates: start: 2011, end: 201207
  2. ENALAPRIL [Concomitant]
     Indication: HYPERTENSION
     Dosage: 10 mg/2 tablets , 2x/day
     Route: 048
     Dates: start: 1997, end: 20120915

REACTIONS (1)
  - Amyotrophic lateral sclerosis [Fatal]
